FAERS Safety Report 17791836 (Version 2)
Quarter: 2021Q1

REPORT INFORMATION
  Report Type: Report from Study
  Country: ES (occurrence: ES)
  Receive Date: 20200515
  Receipt Date: 20210312
  Transmission Date: 20210419
  Serious: Yes (Other)
  Sender: FDA-Public Use
  Company Number: ES-TEVA-2020-ES-1235737

PATIENT
  Age: 46 Year
  Sex: Female

DRUGS (1)
  1. COPAXONE [Suspect]
     Active Substance: GLATIRAMER ACETATE
     Indication: RELAPSING-REMITTING MULTIPLE SCLEROSIS
     Route: 058
     Dates: start: 20170327

REACTIONS (7)
  - Menorrhagia [Unknown]
  - Menorrhagia [Unknown]
  - Anaemia [Recovered/Resolved]
  - Vaginal polyp [Unknown]
  - Leiomyoma [Not Recovered/Not Resolved]
  - Menstrual discomfort [Unknown]
  - Device ineffective [Unknown]

NARRATIVE: CASE EVENT DATE: 2019
